FAERS Safety Report 17453739 (Version 2)
Quarter: 2020Q1

REPORT INFORMATION
  Report Type: Spontaneous
  Country: US (occurrence: US)
  Receive Date: 20200224
  Receipt Date: 20200318
  Transmission Date: 20200409
  Serious: No
  Sender: FDA-Public Use
  Company Number: NVSC2020US049996

PATIENT

DRUGS (2)
  1. COSENTYX [Suspect]
     Active Substance: SECUKINUMAB
     Indication: PRODUCT USED FOR UNKNOWN INDICATION
     Dosage: 150 MG IN 1 ML
     Route: 065
  2. COSENTYX [Suspect]
     Active Substance: SECUKINUMAB
     Dosage: 150 MG IN 1 ML
     Route: 065

REACTIONS (2)
  - Drug ineffective [Unknown]
  - Ill-defined disorder [Unknown]
